FAERS Safety Report 7948298-7 (Version None)
Quarter: 2011Q4

REPORT INFORMATION
  Report Type: 
  Country: None (occurrence: None)
  Receive Date: 20111125
  Receipt Date: 20111117
  Transmission Date: 20120403
  Serious: No
  Sender: FDA-Public Use
  Company Number: JPI-P-018362

PATIENT
  Age: 47 Year
  Sex: Female

DRUGS (1)
  1. XYREM [Suspect]
     Indication: CATAPLEXY
     Dosage: 9 GM (4.5 GM, 2 IN 1 D), ORAL
     Route: 048
     Dates: start: 20081211

REACTIONS (4)
  - PAIN [None]
  - OSTEOARTHRITIS [None]
  - SURGICAL FAILURE [None]
  - CONDITION AGGRAVATED [None]
